FAERS Safety Report 15707147 (Version 2)
Quarter: 2018Q4

REPORT INFORMATION
  Report Type: Spontaneous
  Country: DE (occurrence: DE)
  Receive Date: 20181210
  Receipt Date: 20181214
  Transmission Date: 20190205
  Serious: Yes (Hospitalization)
  Sender: FDA-Public Use
  Company Number: PHHY2018DE176835

PATIENT
  Age: 13 Year
  Sex: Male
  Weight: 71.5 kg

DRUGS (2)
  1. MTX SANDOZ [Suspect]
     Active Substance: METHOTREXATE SODIUM
     Indication: JUVENILE IDIOPATHIC ARTHRITIS
     Dosage: 1 DF, (1 WEEK)
     Route: 058
     Dates: start: 20180316
  2. HUMIRA [Suspect]
     Active Substance: ADALIMUMAB
     Indication: JUVENILE IDIOPATHIC ARTHRITIS
     Dosage: 1 DF, (2 WEEK)
     Route: 058
     Dates: start: 20180316

REACTIONS (6)
  - Paraesthesia [Not Recovered/Not Resolved]
  - Muscle fatigue [Not Recovered/Not Resolved]
  - Gait disturbance [Not Recovered/Not Resolved]
  - Hypoaesthesia [Not Recovered/Not Resolved]
  - Fall [Not Recovered/Not Resolved]
  - Somatic symptom disorder [Not Recovered/Not Resolved]

NARRATIVE: CASE EVENT DATE: 20180925
